FAERS Safety Report 8486907-7 (Version None)
Quarter: 2012Q3

REPORT INFORMATION
  Report Type: 
  Country: None (occurrence: None)
  Receive Date: 20120704
  Receipt Date: 20120628
  Transmission Date: 20120928
  Serious: Yes (Other)
  Sender: FDA-Public Use
  Company Number: US-AMGEN-USASP2012016133

PATIENT
  Age: 55 Year
  Sex: Male
  Weight: 91.2 kg

DRUGS (12)
  1. PERCOCET [Concomitant]
     Indication: SPINAL CORD INJURY
     Dosage: UNK
  2. NEUPOGEN [Suspect]
     Indication: PRODUCT USED FOR UNKNOWN INDICATION
     Dosage: UNK
  3. COPEGUS [Suspect]
     Indication: HEPATITIS C
     Dosage: 200 MG, BID
     Route: 048
     Dates: start: 20040629, end: 20050101
  4. PEGASYS [Suspect]
     Dosage: 180 MUG, QWK
     Dates: start: 20120108
  5. COPEGUS [Suspect]
     Dosage: 1200 MG/KG, UNK
     Route: 048
     Dates: start: 20110629
  6. PEGASYS [Suspect]
     Dosage: 150 MUG, UNK
  7. PEGASYS [Suspect]
     Indication: HEPATITIS C
     Dosage: 180 MUG, QWK
     Route: 058
     Dates: start: 20040629, end: 20050101
  8. PEGASYS [Suspect]
     Dosage: 180 MUG, QWK
     Route: 058
     Dates: start: 20090317
  9. PEGASYS [Suspect]
     Dosage: 180 MUG, QWK
     Route: 058
     Dates: start: 20110629
  10. COPEGUS [Suspect]
     Dosage: 400 MG, BID
     Route: 048
     Dates: start: 20090317
  11. COPEGUS [Suspect]
     Dosage: UNK
     Dates: start: 20120108
  12. REBETOL [Suspect]
     Indication: HEPATITIS C
     Dosage: 2 DF, BID

REACTIONS (23)
  - NIGHT SWEATS [None]
  - INCREASED TENDENCY TO BRUISE [None]
  - ILL-DEFINED DISORDER [None]
  - MOOD SWINGS [None]
  - PALPITATIONS [None]
  - ABDOMINAL PAIN [None]
  - ENERGY INCREASED [None]
  - HALLUCINATION [None]
  - MENTAL DISORDER [None]
  - ABDOMINAL PAIN UPPER [None]
  - RASH [None]
  - FULL BLOOD COUNT DECREASED [None]
  - TOOTH INJURY [None]
  - FLATULENCE [None]
  - DRY EYE [None]
  - INFLUENZA LIKE ILLNESS [None]
  - ANXIETY [None]
  - ALOPECIA [None]
  - PAIN [None]
  - PLATELET COUNT DECREASED [None]
  - INSOMNIA [None]
  - CONFUSIONAL STATE [None]
  - BACK PAIN [None]
